FAERS Safety Report 4986366-2 (Version None)
Quarter: 2006Q2

REPORT INFORMATION
  Report Type: 
  Country: None (occurrence: None)
  Receive Date: 20060428
  Receipt Date: 20060301
  Transmission Date: 20061013
  Serious: Yes (Other)
  Sender: FDA-Public Use
  Company Number: GB-GLAXOSMITHKLINE-B0413974A

PATIENT
  Age: 81 Year
  Sex: Male

DRUGS (2)
  1. FLIXONASE [Suspect]
     Route: 045
  2. SERETIDE [Concomitant]
     Route: 055

REACTIONS (4)
  - BLINDNESS [None]
  - VISION BLURRED [None]
  - VISUAL ACUITY REDUCED [None]
  - VISUAL DISTURBANCE [None]
